FAERS Safety Report 8276309-0 (Version None)
Quarter: 2012Q2

REPORT INFORMATION
  Report Type: 
  Country: None (occurrence: None)
  Receive Date: 20120409
  Receipt Date: 20120323
  Transmission Date: 20120825
  Serious: Yes (Hospitalization, Other)
  Sender: FDA-Public Use
  Company Number: 7121263

PATIENT
  Age: 62 Year
  Sex: Female

DRUGS (16)
  1. ACETYLSALICYLIC ACID SRT [Concomitant]
  2. LEVOTHYROXINE SODIUM [Suspect]
     Indication: PRODUCT USED FOR UNKNOWN INDICATION
     Dosage: (150 MCG, 1 D)
  3. FENTANYL [Concomitant]
  4. MACROGOL (MACROGOL) [Concomitant]
  5. HYDROMORPHONE HCL [Suspect]
     Indication: BONE PAIN
     Dosage: (5.2 MG) 40 MG (20 MG, 2 IN 1 D)
     Route: 048
     Dates: start: 20100901
  6. METAMIZOL (METAMIZOLE MAGNESIUM) [Concomitant]
  7. FLUOXETINE HYDROCHLORIDE [Suspect]
     Indication: PRODUCT USED FOR UNKNOWN INDICATION
     Dosage: (40 MG)
  8. NITROGLYCERINE (NITROGLYCERIN) (GLYCERYL TRINITRATE) [Concomitant]
  9. GABAPENTIN [Suspect]
     Indication: BONE PAIN
     Dosage: (900 MG, OVER 3 DAYS UP TO 900MG PER DAY)
     Dates: start: 20100901
  10. AMITRIPTYLINE HYDROCHLORIDE [Suspect]
     Indication: PRODUCT USED FOR UNKNOWN INDICATION
     Dosage: (100 MG)
  11. ALPRAZOLAM [Suspect]
     Indication: PRODUCT USED FOR UNKNOWN INDICATION
     Dosage: (0.5 MG)
  12. DIAZEPAM [Suspect]
     Indication: PRODUCT USED FOR UNKNOWN INDICATION
     Dosage: 10 MG (5 MG, 2 IN 1 D)
  13. LORAZEPAM [Suspect]
     Indication: DELIRIUM
     Dosage: (2 MG, EVERY FEW HOURS) (2 MG, 1 D)
  14. ANASTROZOL (ANASTROZOLE) (ANASTROZOLE) [Concomitant]
  15. SIMVASTATIN [Suspect]
     Indication: PRODUCT USED FOR UNKNOWN INDICATION
     Dosage: (40 MG)
  16. METOPROLOL TARTRATE [Concomitant]

REACTIONS (13)
  - HYPOTENSION [None]
  - AGITATION [None]
  - SEPSIS [None]
  - DELIRIUM [None]
  - PNEUMONIA [None]
  - HALLUCINATION, VISUAL [None]
  - THROMBOCYTOPENIA [None]
  - BLOOD CULTURE POSITIVE [None]
  - COGNITIVE DISORDER [None]
  - PAIN IN EXTREMITY [None]
  - HEMIPARESIS [None]
  - RENAL FAILURE [None]
  - ARTHRALGIA [None]
